FAERS Safety Report 11841821 (Version 1)
Quarter: 2015Q4

REPORT INFORMATION
  Report Type: Spontaneous
  Country: US (occurrence: US)
  Receive Date: 20151216
  Receipt Date: 20151216
  Transmission Date: 20160305
  Serious: No
  Sender: FDA-Public Use
  Company Number: US-TEVA-619243USA

PATIENT
  Age: 64 Year
  Sex: Female

DRUGS (4)
  1. PERTUZAMAB [Suspect]
     Active Substance: PERTUZUMAB
     Dates: start: 20150722, end: 20150723
  2. GRANIX [Suspect]
     Active Substance: TBO-FILGRASTIM
     Route: 065
     Dates: start: 20150723, end: 20150723
  3. DOCETAXEL. [Suspect]
     Active Substance: DOCETAXEL
     Dates: start: 20150722, end: 20150723
  4. HERCEPTIN [Suspect]
     Active Substance: TRASTUZUMAB
     Dates: start: 20150722, end: 20150723

REACTIONS (2)
  - Diarrhoea [Unknown]
  - Rash [Unknown]
